FAERS Safety Report 7216240-2 (Version None)
Quarter: 2011Q1

REPORT INFORMATION
  Report Type: 
  Country: None (occurrence: None)
  Receive Date: 20110107
  Receipt Date: 20110106
  Transmission Date: 20110831
  Serious: Yes (Hospitalization)
  Sender: FDA-Public Use
  Company Number: US-SHIRE-ALL1-2011-00042

PATIENT
  Sex: Male
  Weight: 66.667 kg

DRUGS (10)
  1. FOSRENOL [Suspect]
     Indication: HYPERPHOSPHATAEMIA
     Dosage: UNK MG, OTHER(WITH MEALS)
     Route: 048
  2. PRINIVIL [Concomitant]
     Indication: HYPERTENSION
     Dosage: 20 MG, 1X/DAY:QD
     Route: 048
  3. LACTULOSE [Concomitant]
     Indication: GASTROINTESTINAL MOTILITY DISORDER
     Dosage: UNK, UNKNOWN
     Route: 048
     Dates: start: 20040101
  4. PROVIGIL [Concomitant]
     Indication: NARCOLEPSY
     Dosage: 200 MG, 1X/DAY:QD
     Route: 048
  5. INSULIN [Concomitant]
     Indication: DIABETES MELLITUS
     Dosage: UNK, OTHER(FIVE IMES DAILY)
     Route: 058
     Dates: end: 20100101
  6. VITAMIN A [Concomitant]
     Indication: PRODUCT USED FOR UNKNOWN INDICATION
     Dosage: UNK, 1X/WEEK
     Route: 048
  7. RENAL CAP [Concomitant]
     Indication: PRODUCT USED FOR UNKNOWN INDICATION
     Dosage: UNK, 1X/DAY:QD
     Route: 048
     Dates: start: 20060101
  8. LIDODERM [Concomitant]
     Indication: BACK PAIN
     Dosage: UNK, 2X/DAY:BID
     Route: 062
     Dates: start: 20100101
  9. DILANTIN [Concomitant]
     Indication: CONVULSION
     Dosage: 100 MG, 3X/DAY:TID
     Route: 048
     Dates: start: 20030101
  10. LAMICTAL [Concomitant]
     Indication: CONVULSION
     Dosage: 100 MG, 2X/DAY:BID
     Route: 048
     Dates: start: 20030101

REACTIONS (6)
  - LOCALISED INTRAABDOMINAL FLUID COLLECTION [None]
  - GLAUCOMA [None]
  - DIABETES MELLITUS INADEQUATE CONTROL [None]
  - NECK PAIN [None]
  - CONDITION AGGRAVATED [None]
  - PLEURAL EFFUSION [None]
